FAERS Safety Report 14679505 (Version 1)
Quarter: 2018Q1

REPORT INFORMATION
  Report Type: Spontaneous
  Country: CN (occurrence: CN)
  Receive Date: 20180326
  Receipt Date: 20180326
  Transmission Date: 20180509
  Serious: Yes (Other)
  Sender: FDA-Public Use
  Company Number: CN-ALLERGAN-1814857US

PATIENT
  Age: 18 Year
  Sex: Male

DRUGS (1)
  1. BRIMONIDINE;TIMOLOL UNK [Suspect]
     Active Substance: BRIMONIDINE TARTRATE\TIMOLOL MALEATE
     Indication: OPEN ANGLE GLAUCOMA
     Route: 065

REACTIONS (4)
  - Eye haemorrhage [Recovered/Resolved]
  - Drug ineffective [Unknown]
  - Intraocular pressure increased [Recovering/Resolving]
  - Retinal haemorrhage [Recovered/Resolved]
